FAERS Safety Report 8284103-X (Version None)
Quarter: 2012Q2

REPORT INFORMATION
  Report Type: 
  Country: None (occurrence: None)
  Receive Date: 20120413
  Receipt Date: 20111212
  Transmission Date: 20120825
  Serious: No
  Sender: FDA-Public Use
  Company Number: US-ASTRAZENECA-2011SE64825

PATIENT
  Age: 45 Year
  Sex: Female

DRUGS (1)
  1. NEXIUM [Suspect]
     Route: 048

REACTIONS (13)
  - DRUG INEFFECTIVE [None]
  - MOBILITY DECREASED [None]
  - APHAGIA [None]
  - DRUG DOSE OMISSION [None]
  - INJURY [None]
  - PAIN [None]
  - ABDOMINAL PAIN UPPER [None]
  - VOMITING [None]
  - CONDITION AGGRAVATED [None]
  - BARRETT'S OESOPHAGUS [None]
  - MUSCULAR WEAKNESS [None]
  - GASTRIC DISORDER [None]
  - MALAISE [None]
